FAERS Safety Report 10207734 (Version 1)
Quarter: 2014Q2

REPORT INFORMATION
  Report Type: Spontaneous
  Country: US (occurrence: US)
  Receive Date: 20140530
  Receipt Date: 20140530
  Transmission Date: 20141212
  Serious: No
  Sender: FDA-Public Use
  Company Number: US-GLAXOSMITHKLINE-A1056819A

PATIENT
  Age: 46 Year
  Sex: Male

DRUGS (2)
  1. VENTOLIN HFA [Suspect]
     Indication: ASTHMA
     Dates: start: 20120127
  2. ADVAIR [Concomitant]
     Dates: start: 20120127

REACTIONS (2)
  - Asthma [Unknown]
  - Inhalation therapy [Unknown]
